FAERS Safety Report 9450436 (Version 1)
Quarter: 2013Q3

REPORT INFORMATION
  Report Type: Spontaneous
  Country: US (occurrence: US)
  Receive Date: 20130809
  Receipt Date: 20130809
  Transmission Date: 20140515
  Serious: No
  Sender: FDA-Public Use
  Company Number: US-BAYER-2013-096902

PATIENT
  Sex: 0

DRUGS (4)
  1. ALEVE CAPLET [Suspect]
     Indication: HEADACHE
  2. TYLENOL [PARACETAMOL] [Concomitant]
     Dosage: 200 MG, UNK
  3. MOTRIN [Concomitant]
     Indication: HEADACHE
     Dosage: 600 MG, UNK
  4. ADVIL [Concomitant]
     Indication: HEADACHE

REACTIONS (1)
  - Drug ineffective [None]
